FAERS Safety Report 17143522 (Version 1)
Quarter: 2019Q4

REPORT INFORMATION
  Report Type: Spontaneous
  Country: SE (occurrence: SE)
  Receive Date: 20191212
  Receipt Date: 20191212
  Transmission Date: 20200122
  Serious: Yes (Hospitalization)
  Sender: FDA-Public Use
  Company Number: SE-TEVA-2019-SE-1148971

PATIENT
  Age: 43 Year
  Sex: Female

DRUGS (3)
  1. STESOLID [Suspect]
     Active Substance: DIAZEPAM
     Dosage: 2 STESOLID UNCLEAR STRENGTH
     Route: 048
     Dates: start: 20180831, end: 20180831
  2. LERGIGAN (PROMETHAZINE HYDROCHLORIDE) [Suspect]
     Active Substance: PROMETHAZINE HYDROCHLORIDE
     Dosage: CLAY GIG 20 PCS, PROBABLY 25 MG
     Route: 048
     Dates: start: 20180831, end: 20180831
  3. THERALEN [Suspect]
     Active Substance: TRIMEPRAZINE
     Dosage: 12 MG
     Route: 048
     Dates: start: 20180831, end: 20180831

REACTIONS (3)
  - Electrocardiogram QRS complex shortened [Unknown]
  - Intentional overdose [Unknown]
  - Intentional self-injury [Unknown]

NARRATIVE: CASE EVENT DATE: 20180831
